FAERS Safety Report 15048682 (Version 1)
Quarter: 2018Q2

REPORT INFORMATION
  Report Type: Spontaneous
  Country: US (occurrence: US)
  Receive Date: 20180622
  Receipt Date: 20180622
  Transmission Date: 20180711
  Serious: Yes (Other)
  Sender: FDA-Public Use
  Company Number: US-PFIZER INC-2018247544

PATIENT
  Age: 64 Year
  Sex: Female
  Weight: 72 kg

DRUGS (2)
  1. TOPROL XL [Concomitant]
     Active Substance: METOPROLOL SUCCINATE
     Indication: IMPLANTABLE DEFIBRILLATOR INSERTION
     Dosage: 25 MG, DAILY [A DAY]
     Dates: start: 2004
  2. XELJANZ XR [Suspect]
     Active Substance: TOFACITINIB CITRATE
     Indication: RHEUMATOID ARTHRITIS
     Dosage: 11 MG, 1X/DAY
     Dates: start: 201806

REACTIONS (4)
  - Palpitations [Unknown]
  - Hypertension [Unknown]
  - Intentional product misuse [Unknown]
  - Tinnitus [Unknown]

NARRATIVE: CASE EVENT DATE: 201806
